FAERS Safety Report 7990052-4 (Version None)
Quarter: 2011Q4

REPORT INFORMATION
  Report Type: 
  Country: None (occurrence: None)
  Receive Date: 20111219
  Receipt Date: 20110729
  Transmission Date: 20120403
  Serious: No
  Sender: FDA-Public Use
  Company Number: US-ASTRAZENECA-2011SE45769

PATIENT
  Age: 62 Year
  Sex: Female
  Weight: 127 kg

DRUGS (3)
  1. BENICAR [Concomitant]
  2. CRESTOR [Suspect]
     Indication: BLOOD CHLORIDE ABNORMAL
     Route: 048
     Dates: start: 20010101, end: 20110701
  3. CYMBALTA [Concomitant]

REACTIONS (2)
  - RASH [None]
  - DYSPHONIA [None]
